FAERS Safety Report 6764504-9 (Version None)
Quarter: 2010Q2

REPORT INFORMATION
  Report Type: 
  Country: None (occurrence: None)
  Receive Date: 20100610
  Receipt Date: 20100531
  Transmission Date: 20101027
  Serious: Yes (Other)
  Sender: FDA-Public Use
  Company Number: PHHY2010DE24745

PATIENT
  Sex: Male

DRUGS (1)
  1. EXTAVIA [Suspect]
     Indication: MULTIPLE SCLEROSIS
     Dosage: 250 UG, QOD
     Route: 058
     Dates: start: 20100218

REACTIONS (5)
  - ANGINA PECTORIS [None]
  - BLOOD PRESSURE DIASTOLIC INCREASED [None]
  - DIZZINESS [None]
  - HEADACHE [None]
  - INFLUENZA LIKE ILLNESS [None]
